FAERS Safety Report 7526606-9 (Version None)
Quarter: 2011Q2

REPORT INFORMATION
  Report Type: 
  Country: None (occurrence: None)
  Receive Date: 20110606
  Receipt Date: 20110601
  Transmission Date: 20111010
  Serious: Yes (Other)
  Sender: FDA-Public Use
  Company Number: US-GILEAD-2011-0035255

PATIENT
  Age: 29 Year
  Sex: Female

DRUGS (6)
  1. KALETRA [Concomitant]
     Indication: HIV INFECTION
     Dates: start: 20100727, end: 20101020
  2. TRUVADA [Suspect]
     Indication: HIV INFECTION
     Route: 048
     Dates: start: 20101021
  3. COMBIVIR [Concomitant]
     Indication: HIV INFECTION
     Dates: start: 20100727, end: 20101020
  4. NORVIR [Concomitant]
     Indication: HIV INFECTION
     Dates: start: 20101021
  5. REYATAZ [Concomitant]
     Dates: start: 20101021, end: 20110128
  6. REYATAZ [Concomitant]
     Indication: HIV INFECTION
     Dates: start: 20110129

REACTIONS (1)
  - PREMATURE DELIVERY [None]
